FAERS Safety Report 17704619 (Version 1)
Quarter: 2020Q2

REPORT INFORMATION
  Report Type: Spontaneous
  Country: US (occurrence: US)
  Receive Date: 20200424
  Receipt Date: 20200424
  Transmission Date: 20200714
  Serious: No
  Sender: FDA-Public Use
  Company Number: None

PATIENT
  Age: 69 Year
  Sex: Female

DRUGS (1)
  1. ENOXAPARIN 40MG/0.4ML PFS INJ [Suspect]
     Active Substance: ENOXAPARIN
     Route: 058
     Dates: start: 2020

REACTIONS (2)
  - Contusion [None]
  - Injection site pain [None]

NARRATIVE: CASE EVENT DATE: 20200424
